FAERS Safety Report 5991736-X (Version None)
Quarter: 2008Q4

REPORT INFORMATION
  Report Type: 
  Country: None (occurrence: None)
  Receive Date: 20081211
  Receipt Date: 20081208
  Transmission Date: 20090506
  Serious: Yes (Hospitalization)
  Sender: FDA-Public Use
  Company Number: FR-WYE-G02733108

PATIENT
  Sex: Male
  Weight: 27 kg

DRUGS (1)
  1. ADVIL [Suspect]
     Indication: ARTHRITIS REACTIVE
     Dosage: UNKNOWN
     Route: 048
     Dates: start: 20081020, end: 20081022

REACTIONS (3)
  - BACTERIAL INFECTION [None]
  - CONDITION AGGRAVATED [None]
  - OSTEOMYELITIS ACUTE [None]
